FAERS Safety Report 24593522 (Version 1)
Quarter: 2024Q4

REPORT INFORMATION
  Report Type: Spontaneous
  Country: US (occurrence: US)
  Receive Date: 20241108
  Receipt Date: 20241108
  Transmission Date: 20250115
  Serious: Yes (Hospitalization)
  Sender: TEVA
  Company Number: US-TEVA-VS-3261153

PATIENT
  Age: 64 Year
  Sex: Female

DRUGS (1)
  1. AUSTEDO XR [Suspect]
     Active Substance: DEUTETRABENAZINE
     Indication: Huntington^s disease
     Dosage: 6,12,24 MG (4-WEEK PATIENT TITRATION KIT)
     Route: 065

REACTIONS (5)
  - Hospitalisation [Unknown]
  - Withdrawal syndrome [Unknown]
  - Insurance issue [Unknown]
  - Product use issue [Unknown]
  - Depression [Unknown]
